FAERS Safety Report 6889710-4 (Version None)
Quarter: 2010Q3

REPORT INFORMATION
  Report Type: 
  Country: None (occurrence: None)
  Receive Date: 20100730
  Receipt Date: 20080416
  Transmission Date: 20110219
  Serious: No
  Sender: FDA-Public Use
  Company Number: US-PFIZER INC-2008015084

PATIENT
  Sex: Female
  Weight: 62.272 kg

DRUGS (5)
  1. LIPITOR [Suspect]
     Indication: BLOOD CHOLESTEROL INCREASED
     Dates: start: 19950101, end: 20060101
  2. DILTIAZEM [Suspect]
     Indication: HYPERTENSION
     Dates: start: 19900101, end: 20060101
  3. CADUET [Suspect]
     Indication: BLOOD CHOLESTEROL INCREASED
     Dosage: 2.5/10MG, 2.5/10MG
     Dates: start: 20060101
  4. CADUET [Suspect]
     Indication: HYPERTENSION
  5. XALATAN [Concomitant]

REACTIONS (6)
  - BLOOD CHOLESTEROL INCREASED [None]
  - BLOOD PRESSURE INCREASED [None]
  - DIZZINESS [None]
  - OVERDOSE [None]
  - PAIN IN EXTREMITY [None]
  - WEIGHT INCREASED [None]
